FAERS Safety Report 12348531 (Version 1)
Quarter: 2016Q2

REPORT INFORMATION
  Report Type: Spontaneous
  Country: US (occurrence: US)
  Receive Date: 20160509
  Receipt Date: 20160509
  Transmission Date: 20160815
  Serious: Yes (Hospitalization, Other)
  Sender: FDA-Public Use
  Company Number: ADR-2015-01204

PATIENT
  Age: 28 Year
  Sex: Male

DRUGS (1)
  1. LIORESAL [Suspect]
     Active Substance: BACLOFEN
     Route: 037
     Dates: start: 20150601

REACTIONS (11)
  - Medical device site swelling [Unknown]
  - Headache [Unknown]
  - Staphylococcus test positive [Unknown]
  - Catheter site infection [Unknown]
  - Wound infection staphylococcal [Unknown]
  - Medical device site discharge [Unknown]
  - Pyrexia [Unknown]
  - Postoperative wound infection [Unknown]
  - Central nervous system infection [Unknown]
  - Implant site infection [Unknown]
  - Meningitis [Unknown]

NARRATIVE: CASE EVENT DATE: 20150610
